FAERS Safety Report 6397518-1 (Version None)
Quarter: 2009Q4

REPORT INFORMATION
  Report Type: 
  Country: None (occurrence: None)
  Receive Date: 20091012
  Receipt Date: 20091011
  Transmission Date: 20100525
  Serious: Yes (Other)
  Sender: FDA-Public Use
  Company Number: US-PFIZER INC-2009220986

PATIENT
  Sex: Female
  Weight: 58.957 kg

DRUGS (3)
  1. DIFLUCAN [Suspect]
     Indication: FUNGAL INFECTION
     Dosage: 150 MG, 1X/DAY
     Dates: start: 20081001, end: 20090521
  2. GENERAL NUTRIENTS/HERBAL NOS [Concomitant]
  3. GARLIC [Concomitant]

REACTIONS (3)
  - DYSGEUSIA [None]
  - MUSCLE SPASMS [None]
  - MUSCLE TWITCHING [None]
